FAERS Safety Report 6100650-0 (Version None)
Quarter: 2009Q2

REPORT INFORMATION
  Report Type: 
  Country: None (occurrence: None)
  Receive Date: 20090227
  Receipt Date: 20090227
  Transmission Date: 20091009
  Serious: No
  Sender: FDA-Public Use
  Company Number: None

PATIENT
  Age: 64 Year
  Sex: Female
  Weight: 57.1532 kg

DRUGS (1)
  1. NORVASC [Suspect]
     Dosage: 2.5 ONCE IN MORNING
     Dates: start: 20090212, end: 20090215

REACTIONS (2)
  - PHOTOPSIA [None]
  - VISION BLURRED [None]
